FAERS Safety Report 18907282 (Version 1)
Quarter: 2021Q1

REPORT INFORMATION
  Report Type: Spontaneous
  Country: US (occurrence: US)
  Receive Date: 20210217
  Receipt Date: 20210217
  Transmission Date: 20210420
  Serious: No
  Sender: FDA-Public Use
  Company Number: US-VALIDUS PHARMACEUTICALS LLC-US-2020VAL000467

PATIENT
  Sex: Female
  Weight: 76.66 kg

DRUGS (5)
  1. LASIX [Suspect]
     Active Substance: FUROSEMIDE
     Indication: PRODUCT USED FOR UNKNOWN INDICATION
     Dosage: TOUCHED THE TABLET
     Route: 003
  2. IBRANCE [Suspect]
     Active Substance: PALBOCICLIB
     Dosage: 1 DF, QD (FOR 18 OR 19 DAYS AND OFF OF FOR 10 TO 12 DAYS)
     Route: 048
  3. IBRANCE [Suspect]
     Active Substance: PALBOCICLIB
     Dosage: 100 MG, (FOR 3 WEEKS)
     Route: 065
  4. IBRANCE [Suspect]
     Active Substance: PALBOCICLIB
     Indication: BREAST CANCER METASTATIC
     Dosage: 125 MG, (2 WEEKS AND THEN OFF FOR 2 WEEKS)
     Route: 065
     Dates: start: 20191029
  5. IBRANCE [Suspect]
     Active Substance: PALBOCICLIB
     Dosage: 1 DF, QD (FOR 21 DAYS AND OFF FOR 14 DAYS)
     Route: 048

REACTIONS (5)
  - Joint swelling [Recovered/Resolved]
  - Drug hypersensitivity [Unknown]
  - Peripheral swelling [Recovered/Resolved]
  - Skin ulcer haemorrhage [Unknown]
  - Exposure via skin contact [Recovered/Resolved]

NARRATIVE: CASE EVENT DATE: 2012
